FAERS Safety Report 9347872 (Version 1)
Quarter: 2013Q2

REPORT INFORMATION
  Report Type: Spontaneous
  Country: US (occurrence: None)
  Receive Date: 20130612
  Receipt Date: 20130612
  Transmission Date: 20140414
  Serious: Yes (Life-Threatening)
  Sender: FDA-Public Use
  Company Number: None

PATIENT
  Age: 67 Year
  Sex: Male
  Weight: 83.01 kg

DRUGS (7)
  1. JANUVIA 100 MG [Suspect]
     Indication: TYPE 2 DIABETES MELLITUS
     Dosage: ONCE DAILY
     Route: 048
     Dates: start: 20070515, end: 20110909
  2. INSULIN [Concomitant]
  3. SIMVASTATIN, [Concomitant]
  4. LEVOTHYROXINE, [Concomitant]
  5. BENAZEPRIL [Concomitant]
  6. HYDROCHLOROTHIAZIDE [Concomitant]
  7. METFORMIN [Concomitant]

REACTIONS (1)
  - Pancreatic carcinoma metastatic [None]
